FAERS Safety Report 16150634 (Version 1)
Quarter: 2019Q2

REPORT INFORMATION
  Report Type: Spontaneous
  Country: RU (occurrence: RU)
  Receive Date: 20190403
  Receipt Date: 20190403
  Transmission Date: 20190711
  Serious: Yes (Other)
  Sender: FDA-Public Use
  Company Number: RU-JNJFOC-20190344435

PATIENT
  Age: 70 Year
  Sex: Female
  Weight: 103 kg

DRUGS (3)
  1. INVOKANA [Suspect]
     Active Substance: CANAGLIFLOZIN
     Indication: TYPE 2 DIABETES MELLITUS
     Route: 048
     Dates: start: 201705, end: 20190328
  2. LANTUS [Concomitant]
     Active Substance: INSULIN GLARGINE
     Indication: TYPE 2 DIABETES MELLITUS
     Route: 065
  3. NOVOMIX [Concomitant]
     Active Substance: INSULIN ASPART
     Indication: TYPE 2 DIABETES MELLITUS
     Route: 065

REACTIONS (5)
  - Urinary tract infection fungal [Not Recovered/Not Resolved]
  - Somnolence [Not Recovered/Not Resolved]
  - Pruritus [Not Recovered/Not Resolved]
  - Hypotension [Not Recovered/Not Resolved]
  - Chills [Not Recovered/Not Resolved]
